FAERS Safety Report 6661944-3 (Version None)
Quarter: 2010Q1

REPORT INFORMATION
  Report Type: 
  Country: None (occurrence: None)
  Receive Date: 20100331
  Receipt Date: 20091019
  Transmission Date: 20100710
  Serious: No
  Sender: FDA-Public Use
  Company Number: US-BRISTOL-MYERS SQUIBB COMPANY-14822316

PATIENT
  Age: 61 Year
  Sex: Male
  Weight: 59 kg

DRUGS (9)
  1. ERBITUX [Suspect]
     Indication: HEAD AND NECK CANCER
     Dates: start: 20090610
  2. ERBITUX [Suspect]
     Indication: METASTASES TO LUNG
     Dates: start: 20090610
  3. HERCEPTIN [Suspect]
     Dates: end: 20090701
  4. BENADRYL [Concomitant]
     Indication: PREMEDICATION
  5. NEXIUM [Concomitant]
  6. VYTORIN [Concomitant]
  7. ASPIRIN [Concomitant]
  8. MICARDIS [Concomitant]
  9. LEXAPRO [Concomitant]

REACTIONS (1)
  - HEARING IMPAIRED [None]
